FAERS Safety Report 15977329 (Version 2)
Quarter: 2019Q1

REPORT INFORMATION
  Report Type: Spontaneous
  Country: MX (occurrence: MX)
  Receive Date: 20190218
  Receipt Date: 20190225
  Transmission Date: 20190418
  Serious: Yes (Hospitalization, Other)
  Sender: FDA-Public Use
  Company Number: MX-PFIZER INC-2019071738

PATIENT
  Age: 66 Year
  Sex: Female
  Weight: 54 kg

DRUGS (4)
  1. CORDARONE [Suspect]
     Active Substance: AMIODARONE HYDROCHLORIDE
     Dosage: 1 DF, 2X/DAY
     Dates: start: 20181228
  2. CORDARONE [Suspect]
     Active Substance: AMIODARONE HYDROCHLORIDE
     Dosage: 0.25 DF, 1X/DAY (ONE FOURTH ORAL TABLET)
     Route: 048
     Dates: start: 2014
  3. CORDARONE [Suspect]
     Active Substance: AMIODARONE HYDROCHLORIDE
     Dosage: 1 DF, 1X/DAY
     Dates: start: 2018, end: 20181227
  4. CORDARONE [Suspect]
     Active Substance: AMIODARONE HYDROCHLORIDE
     Indication: TACHYCARDIA
     Dosage: 1 DF, DAILY
     Route: 048
     Dates: start: 2008

REACTIONS (4)
  - Large intestine perforation [Recovered/Resolved]
  - Hypothyroidism [Not Recovered/Not Resolved]
  - Tachycardia [Recovered/Resolved]
  - Large intestinal obstruction [Recovering/Resolving]

NARRATIVE: CASE EVENT DATE: 2014
